FAERS Safety Report 4857056-1 (Version None)
Quarter: 2005Q4

REPORT INFORMATION
  Report Type: 
  Country: None (occurrence: None)
  Receive Date: 20051219
  Receipt Date: 20041217
  Transmission Date: 20060501
  Serious: No
  Sender: FDA-Public Use
  Company Number: US-GLAXOSMITHKLINE-A0537714A

PATIENT
  Age: 42 Year
  Sex: Male

DRUGS (2)
  1. EQUATE NTS 21MG [Suspect]
     Route: 062
     Dates: start: 20041128, end: 20041208
  2. PROZAC [Concomitant]
     Indication: DEPRESSION
     Route: 048

REACTIONS (3)
  - HYPERTENSION [None]
  - MUSCLE SPASMS [None]
  - PAIN IN EXTREMITY [None]
